FAERS Safety Report 6335253-6 (Version None)
Quarter: 2009Q3

REPORT INFORMATION
  Report Type: 
  Country: None (occurrence: None)
  Receive Date: 20090831
  Receipt Date: 20090820
  Transmission Date: 20100115
  Serious: Yes (Death, Hospitalization)
  Sender: FDA-Public Use
  Company Number: FR-MERCK-0908FRA00031

PATIENT
  Age: 81 Year
  Sex: Male

DRUGS (13)
  1. COZAAR [Suspect]
     Route: 048
     Dates: end: 20090424
  2. POTASSIUM CHLORIDE [Suspect]
     Route: 048
     Dates: end: 20090424
  3. AMIODARONE HYDROCHLORIDE [Concomitant]
     Route: 065
  4. PIRIBEDIL [Concomitant]
     Route: 065
  5. DOMPERIDONE [Concomitant]
     Route: 065
  6. FLUINDIONE [Concomitant]
     Route: 065
  7. ASPIRIN LYSINE [Concomitant]
     Route: 065
  8. ESOMEPRAZOLE MAGNESIUM [Concomitant]
     Route: 065
  9. GLICLAZIDE [Concomitant]
     Route: 065
  10. HYDROCHLOROTHIAZIDE [Concomitant]
     Route: 065
  11. CARBIDOPA AND ENTACAPONE AND LEVODOPA [Concomitant]
     Route: 065
  12. LORAZEPAM [Concomitant]
     Route: 065
  13. METFORMIN [Concomitant]
     Route: 065

REACTIONS (2)
  - ARRHYTHMIA [None]
  - HYPERKALAEMIA [None]
